FAERS Safety Report 19405297 (Version 3)
Quarter: 2021Q4

REPORT INFORMATION
  Report Type: Report from Study
  Country: DE (occurrence: DE)
  Receive Date: 20210611
  Receipt Date: 20211108
  Transmission Date: 20220303
  Serious: Yes (Hospitalization, Other)
  Sender: FDA-Public Use
  Company Number: DE-TAKEDA-2021TUS035834

PATIENT
  Age: 54 Year
  Sex: Female

DRUGS (16)
  1. TEDUGLUTIDE [Suspect]
     Active Substance: TEDUGLUTIDE
     Indication: Short-bowel syndrome
     Dosage: 2.4 MILLIGRAM, (0.05MG/KG), QD
     Route: 065
     Dates: start: 20160126, end: 201807
  2. TEDUGLUTIDE [Suspect]
     Active Substance: TEDUGLUTIDE
     Indication: Short-bowel syndrome
     Dosage: 2.4 MILLIGRAM, (0.05MG/KG), QD
     Route: 065
     Dates: start: 20160126, end: 201807
  3. TEDUGLUTIDE [Suspect]
     Active Substance: TEDUGLUTIDE
     Indication: Short-bowel syndrome
     Dosage: 2.4 MILLIGRAM, (0.05MG/KG), QD
     Route: 065
     Dates: start: 20160126, end: 201807
  4. TEDUGLUTIDE [Suspect]
     Active Substance: TEDUGLUTIDE
     Indication: Short-bowel syndrome
     Dosage: 2.4 MILLIGRAM, (0.05MG/KG), QD
     Route: 065
     Dates: start: 20160126, end: 201807
  5. TEDUGLUTIDE [Suspect]
     Active Substance: TEDUGLUTIDE
     Dosage: 2.6 MILLIGRAM, (0.05MG/KG), QD
     Route: 065
     Dates: start: 201807, end: 201809
  6. TEDUGLUTIDE [Suspect]
     Active Substance: TEDUGLUTIDE
     Dosage: 2.6 MILLIGRAM, (0.05MG/KG), QD
     Route: 065
     Dates: start: 201807, end: 201809
  7. TEDUGLUTIDE [Suspect]
     Active Substance: TEDUGLUTIDE
     Dosage: 2.6 MILLIGRAM, (0.05MG/KG), QD
     Route: 065
     Dates: start: 201807, end: 201809
  8. TEDUGLUTIDE [Suspect]
     Active Substance: TEDUGLUTIDE
     Dosage: 2.6 MILLIGRAM, (0.05MG/KG), QD
     Route: 065
     Dates: start: 201807, end: 201809
  9. TEDUGLUTIDE [Suspect]
     Active Substance: TEDUGLUTIDE
     Dosage: 2.4 MILLIGRAM, (0.05MG/KG), QD
     Route: 065
     Dates: start: 201809
  10. TEDUGLUTIDE [Suspect]
     Active Substance: TEDUGLUTIDE
     Dosage: 2.4 MILLIGRAM, (0.05MG/KG), QD
     Route: 065
     Dates: start: 201809
  11. TEDUGLUTIDE [Suspect]
     Active Substance: TEDUGLUTIDE
     Dosage: 2.4 MILLIGRAM, (0.05MG/KG), QD
     Route: 065
     Dates: start: 201809
  12. TEDUGLUTIDE [Suspect]
     Active Substance: TEDUGLUTIDE
     Dosage: 2.4 MILLIGRAM, (0.05MG/KG), QD
     Route: 065
     Dates: start: 201809
  13. TRIMIPRAMINE [Concomitant]
     Active Substance: TRIMIPRAMINE
     Indication: Product used for unknown indication
     Dosage: 100 MILLIGRAM, BID
     Route: 065
     Dates: start: 20201130
  14. BUPRENORPHINE [Concomitant]
     Active Substance: BUPRENORPHINE
     Indication: Product used for unknown indication
     Dosage: 0.20 MILLIGRAM, PRN
     Route: 065
  15. BUPRENORPHINE [Concomitant]
     Active Substance: BUPRENORPHINE
     Dosage: 52.50 UNK
     Route: 008
  16. Novalgin [Concomitant]
     Indication: Pain
     Dosage: 40 GTTS (DROPS), QID
     Route: 048

REACTIONS (5)
  - Device related sepsis [Recovered/Resolved]
  - Klebsiella infection [Recovered/Resolved]
  - Clostridial infection [Recovered/Resolved]
  - Retroperitoneal haemorrhage [Recovered/Resolved]
  - Sleep disorder [Not Recovered/Not Resolved]

NARRATIVE: CASE EVENT DATE: 20201101
